FAERS Safety Report 23751554 (Version 2)
Quarter: 2024Q2

REPORT INFORMATION
  Report Type: Spontaneous
  Country: US (occurrence: US)
  Receive Date: 20240417
  Receipt Date: 20240528
  Transmission Date: 20240716
  Serious: Yes (Hospitalization)
  Sender: FDA-Public Use
  Company Number: US-GSKCCFUS-Case-01983430_AE-110137

PATIENT

DRUGS (1)
  1. TRELEGY ELLIPTA [Suspect]
     Active Substance: FLUTICASONE FUROATE\UMECLIDINIUM BROMIDE\VILANTEROL TRIFENATATE
     Indication: Product used for unknown indication
     Dosage: UNK, 100/62.5/25MCG

REACTIONS (5)
  - Chronic obstructive pulmonary disease [Unknown]
  - Asthma [Unknown]
  - Vitamin B12 deficiency [Unknown]
  - Wrong technique in device usage process [Unknown]
  - Product complaint [Unknown]
